FAERS Safety Report 5473867-6 (Version None)
Quarter: 2007Q3

REPORT INFORMATION
  Report Type: 
  Country: None (occurrence: None)
  Receive Date: 20070831
  Receipt Date: 20070818
  Transmission Date: 20080115
  Serious: No
  Sender: FDA-Public Use
  Company Number: 243131

PATIENT
  Age: 73 Year
  Sex: Male

DRUGS (3)
  1. LUCENTIS [Suspect]
     Indication: DRUG USE FOR UNKNOWN INDICATION
     Dates: start: 20070301
  2. LIPITOR [Concomitant]
  3. ASPIRIN [Concomitant]

REACTIONS (3)
  - EYE PAIN [None]
  - FOREIGN BODY SENSATION IN EYES [None]
  - LACRIMATION INCREASED [None]
